FAERS Safety Report 6917599-3 (Version None)
Quarter: 2010Q3

REPORT INFORMATION
  Report Type: 
  Country: None (occurrence: None)
  Receive Date: 20100810
  Receipt Date: 20081020
  Transmission Date: 20110219
  Serious: No
  Sender: FDA-Public Use
  Company Number: US-PFIZER INC-2005038384

PATIENT
  Sex: Female
  Weight: 86.18 kg

DRUGS (11)
  1. LIPITOR [Suspect]
     Indication: BLOOD CHOLESTEROL INCREASED
     Route: 048
     Dates: start: 20000101
  2. LIPITOR [Suspect]
     Indication: BLOOD TRIGLYCERIDES INCREASED
  3. PROTONIX [Concomitant]
     Route: 048
  4. POTASSIUM [Concomitant]
     Indication: HYPERTENSION
     Route: 048
  5. ALLEGRA [Concomitant]
     Route: 048
  6. LEXAPRO [Concomitant]
     Route: 048
  7. HYDROCHLOROTHIAZIDE [Concomitant]
     Route: 048
  8. PAXIL [Concomitant]
  9. MULTI-VITAMINS [Concomitant]
  10. ACETYLSALICYLIC ACID SRT [Concomitant]
  11. ALL OTHER THERAPEUTIC PRODUCTS [Concomitant]
     Dosage: 25/37.5

REACTIONS (2)
  - BLOOD TRIGLYCERIDES INCREASED [None]
  - LIPIDS INCREASED [None]
